FAERS Safety Report 17061442 (Version 1)
Quarter: 2019Q4

REPORT INFORMATION
  Report Type: Spontaneous
  Country: US (occurrence: US)
  Receive Date: 20191121
  Receipt Date: 20191121
  Transmission Date: 20200122
  Serious: Yes (Hospitalization)
  Sender: FDA-Public Use
  Company Number: US-BAUSCH-BL-2019-061425

PATIENT
  Sex: Female

DRUGS (2)
  1. LANOLIN. [Suspect]
     Active Substance: LANOLIN
     Indication: CORNEAL OEDEMA
     Route: 047
  2. MURO 128 [Suspect]
     Active Substance: SODIUM CHLORIDE
     Indication: CORNEAL OEDEMA
     Route: 047

REACTIONS (2)
  - Dermatitis contact [Unknown]
  - Swelling face [Unknown]

NARRATIVE: CASE EVENT DATE: 201909
